FAERS Safety Report 18109744 (Version 3)
Quarter: 2020Q4

REPORT INFORMATION
  Report Type: Spontaneous
  Country: US (occurrence: US)
  Receive Date: 20200804
  Receipt Date: 20201015
  Transmission Date: 20210113
  Serious: Yes (Other)
  Sender: FDA-Public Use
  Company Number: US-GLAXOSMITHKLINE-US2020AMR148467

PATIENT
  Sex: Female

DRUGS (2)
  1. ZEJULA [Suspect]
     Active Substance: NIRAPARIB
     Dosage: 100 MG, QD
     Route: 048
  2. ZEJULA [Suspect]
     Active Substance: NIRAPARIB
     Indication: OVARIAN CANCER
     Dosage: 100 MG, QD
     Route: 048
     Dates: start: 20200721

REACTIONS (11)
  - Dyspnoea [Unknown]
  - Abdominal pain upper [Unknown]
  - Metastases to liver [Unknown]
  - Fatigue [Unknown]
  - Dyspepsia [Unknown]
  - Off label use [Unknown]
  - Gastric ulcer [Unknown]
  - Headache [Unknown]
  - Asthenia [Unknown]
  - Cardiac valve disease [Unknown]
  - Colon cancer metastatic [Unknown]
